FAERS Safety Report 4739295-3 (Version None)
Quarter: 2005Q3

REPORT INFORMATION
  Report Type: 
  Country: None (occurrence: None)
  Receive Date: 20050810
  Receipt Date: 20050111
  Transmission Date: 20060218
  Serious: No
  Sender: FDA-Public Use
  Company Number: US-GLAXOSMITHKLINE-A0540300A

PATIENT
  Sex: Female

DRUGS (2)
  1. PAXIL [Suspect]
     Indication: DRUG USE FOR UNKNOWN INDICATION
  2. PROZAC [Concomitant]

REACTIONS (5)
  - ABNORMAL DREAMS [None]
  - ELECTRIC SHOCK [None]
  - HEADACHE [None]
  - INFLUENZA LIKE ILLNESS [None]
  - SENSORY DISTURBANCE [None]
